FAERS Safety Report 4510838-8 (Version None)
Quarter: 2004Q4

REPORT INFORMATION
  Report Type: 
  Country: None (occurrence: None)
  Receive Date: 20041122
  Receipt Date: 20041105
  Transmission Date: 20050328
  Serious: Yes (Death)
  Sender: FDA-Public Use
  Company Number: DSA_25351_2004

PATIENT
  Age: 17 Year
  Sex: Female

DRUGS (4)
  1. DILTIAZEM [Suspect]
     Dosage: DF
  2. PARACETAMOL [Suspect]
     Dosage: DF
  3. MIRTAZAPINE [Concomitant]
     Dosage: DF
  4. ZOPICLONE [Suspect]
     Dosage: DF

REACTIONS (2)
  - COMPLETED SUICIDE [None]
  - MULTIPLE DRUG OVERDOSE INTENTIONAL [None]
